FAERS Safety Report 4755073-3 (Version None)
Quarter: 2005Q3

REPORT INFORMATION
  Report Type: 
  Country: None (occurrence: None)
  Receive Date: 20050825
  Receipt Date: 20050809
  Transmission Date: 20060218
  Serious: Yes (Hospitalization)
  Sender: FDA-Public Use
  Company Number: 12131

PATIENT
  Age: 67 Year
  Sex: Male

DRUGS (5)
  1. METHOTREXATE [Suspect]
     Dosage: 7.5 MG WEEKLY PO
     Route: 048
     Dates: start: 20031101
  2. REMICADE [Suspect]
     Indication: ANKYLOSING SPONDYLITIS
     Dosage: 300 MG OTH IV
     Route: 042
     Dates: start: 20040106
  3. FOLIC ACID [Concomitant]
  4. CIPRAMIL [Concomitant]
  5. NORVASC [Concomitant]

REACTIONS (1)
  - ERYSIPELAS [None]
